FAERS Safety Report 9633538 (Version 1)
Quarter: 2013Q4

REPORT INFORMATION
  Report Type: Spontaneous
  Country: VE (occurrence: VE)
  Receive Date: 20131021
  Receipt Date: 20131021
  Transmission Date: 20140711
  Serious: Yes (Other)
  Sender: FDA-Public Use
  Company Number: PHHY2013VE117871

PATIENT
  Age: 38 Year
  Sex: Female

DRUGS (2)
  1. FORADIL [Suspect]
     Indication: ASTHMA
     Dosage: UNK UKN, UNK
     Dates: start: 20130103
  2. MIFLONIDE [Suspect]
     Indication: ASTHMA
     Dosage: 400 MG, TWICE PER DAY
     Dates: start: 20130103

REACTIONS (1)
  - Respiratory distress [Recovering/Resolving]
